FAERS Safety Report 14187935 (Version 1)
Quarter: 2017Q4

REPORT INFORMATION
  Report Type: Spontaneous
  Country: US (occurrence: US)
  Receive Date: 20171114
  Receipt Date: 20171114
  Transmission Date: 20180321
  Serious: Yes (Hospitalization)
  Sender: FDA-Public Use
  Company Number: US-ELI_LILLY_AND_COMPANY-US201711000755

PATIENT
  Sex: Male

DRUGS (1)
  1. CIALIS [Suspect]
     Active Substance: TADALAFIL
     Indication: BENIGN PROSTATIC HYPERPLASIA
     Dosage: 5 MG, PRN
     Route: 048

REACTIONS (9)
  - Hyperphagia [Unknown]
  - Weight increased [Unknown]
  - Oesophagitis [Recovered/Resolved]
  - Musculoskeletal stiffness [Unknown]
  - Oesophageal food impaction [Recovered/Resolved]
  - Inappropriate schedule of drug administration [Unknown]
  - Dysphagia [Unknown]
  - Dyspepsia [Unknown]
  - Oesophageal disorder [Unknown]
